FAERS Safety Report 8956427 (Version 1)
Quarter: 2012Q4

REPORT INFORMATION
  Report Type: 
  Country: US (occurrence: US)
  Receive Date: 20121210
  Receipt Date: 20121210
  Transmission Date: 20130627
  Serious: Yes (Hospitalization)
  Sender: FDA-Public Use
  Company Number: US-EISAI INC-E3810-06113-SPO-US

PATIENT
  Age: 80 Year
  Sex: Female

DRUGS (3)
  1. ACIPHEX (RABEPRAZOLE) [Suspect]
     Indication: GASTROESOPHAGEAL REFLUX
     Route: 048
     Dates: start: 1997
  2. BLOOD PRESSURE PILLS [Concomitant]
     Route: 065
  3. BABY ASPIRIN [Concomitant]
     Route: 065

REACTIONS (4)
  - Hypoaesthesia [Recovered/Resolved]
  - Pain [Not Recovered/Not Resolved]
  - Alopecia [Not Recovered/Not Resolved]
  - Vitamin B12 decreased [Not Recovered/Not Resolved]
